FAERS Safety Report 16311378 (Version 3)
Quarter: 2019Q2

REPORT INFORMATION
  Report Type: Spontaneous
  Country: SI (occurrence: SI)
  Receive Date: 20190514
  Receipt Date: 20190604
  Transmission Date: 20190711
  Serious: Yes (Death, Life-Threatening, Hospitalization, Other)
  Sender: FDA-Public Use
  Company Number: SI-BAUSCH-BL-2019-013632

PATIENT
  Age: 79 Year
  Sex: Male

DRUGS (1)
  1. DEXAMETHASONE. [Suspect]
     Active Substance: DEXAMETHASONE
     Indication: GLIOMATOSIS CEREBRI
     Route: 065

REACTIONS (10)
  - Candidiasis of trachea [Not Recovered/Not Resolved]
  - Acute respiratory distress syndrome [Unknown]
  - Hepatic failure [Unknown]
  - Haematochezia [Unknown]
  - Pneumonia [Not Recovered/Not Resolved]
  - Aspergillus infection [Not Recovered/Not Resolved]
  - Strongyloidiasis [Not Recovered/Not Resolved]
  - Septic shock [Fatal]
  - Renal failure [Unknown]
  - Respiratory failure [Unknown]
